FAERS Safety Report 12267816 (Version 4)
Quarter: 2016Q2

REPORT INFORMATION
  Report Type: Spontaneous
  Country: US (occurrence: US)
  Receive Date: 20160414
  Receipt Date: 20160531
  Transmission Date: 20160815
  Serious: Yes (Hospitalization, Other)
  Sender: FDA-Public Use
  Company Number: US-JNJFOC-20160404912

PATIENT
  Sex: Male

DRUGS (2)
  1. XARELTO [Suspect]
     Active Substance: RIVAROXABAN
     Indication: CEREBROVASCULAR ACCIDENT PROPHYLAXIS
     Route: 048
  2. XARELTO [Suspect]
     Active Substance: RIVAROXABAN
     Indication: ATRIAL FIBRILLATION
     Route: 048

REACTIONS (13)
  - Waist circumference increased [Not Recovered/Not Resolved]
  - Weight increased [Unknown]
  - Raynaud^s phenomenon [Not Recovered/Not Resolved]
  - Drug dose omission [Unknown]
  - Small intestinal perforation [Recovered/Resolved]
  - Colostomy closure [Unknown]
  - Sleep apnoea syndrome [Not Recovered/Not Resolved]
  - Septic shock [Recovered/Resolved]
  - Faeces discoloured [Recovered/Resolved]
  - Coma [Recovered/Resolved]
  - Large intestine benign neoplasm [Recovered/Resolved]
  - Product size issue [Unknown]
  - Abdominal hernia [Not Recovered/Not Resolved]

NARRATIVE: CASE EVENT DATE: 2013
